FAERS Safety Report 10098401 (Version 2)
Quarter: 2014Q3

REPORT INFORMATION
  Report Type: Spontaneous
  Country: JP (occurrence: None)
  Receive Date: 20140421
  Receipt Date: 20140711
  Transmission Date: 20150326
  Serious: Yes (Death, Other)
  Sender: FDA-Public Use
  Company Number: ABR_01587_2014

PATIENT
  Age: 0 Day
  Sex: Female
  Weight: .6 kg

DRUGS (3)
  1. ERYTHROCIN [Suspect]
     Active Substance: ERYTHROMYCIN LACTOBIONATE
     Indication: FOETAL EXPOSURE TIMING UNSPECIFIED
     Route: 064
     Dates: start: 20000803, end: 20000803
  2. RITODRINE HYDROCHLORIDE [Concomitant]
     Active Substance: RITODRINE HYDROCHLORIDE
  3. AMPICILLIN [Concomitant]
     Active Substance: AMPICILLIN

REACTIONS (4)
  - Cerebral haemorrhage [None]
  - Apgar score low [None]
  - Maternal drugs affecting foetus [None]
  - Premature baby [None]

NARRATIVE: CASE EVENT DATE: 20000803
